FAERS Safety Report 6048481-4 (Version None)
Quarter: 2009Q1

REPORT INFORMATION
  Report Type: 
  Country: None (occurrence: None)
  Receive Date: 20090123
  Receipt Date: 20090116
  Transmission Date: 20090719
  Serious: Yes (Hospitalization)
  Sender: FDA-Public Use
  Company Number: A0764866A

PATIENT
  Age: 55 Year
  Sex: Female
  Weight: 81.8 kg

DRUGS (4)
  1. AVANDIA [Suspect]
     Route: 048
     Dates: start: 20040101, end: 20070101
  2. GLUCOPHAGE [Concomitant]
     Dates: start: 19930101, end: 20060101
  3. METFORMIN [Concomitant]
     Dates: start: 19940101
  4. LEVEMIR [Concomitant]
     Dosage: 55UNIT PER DAY
     Dates: start: 20060101

REACTIONS (1)
  - MYOCARDIAL INFARCTION [None]
